FAERS Safety Report 24758021 (Version 13)
Quarter: 2025Q1

REPORT INFORMATION
  Report Type: Spontaneous
  Country: CA (occurrence: CA)
  Receive Date: 20241220
  Receipt Date: 20250320
  Transmission Date: 20250408
  Serious: Yes (Death, Hospitalization, Other)
  Sender: CELLTRION
  Company Number: CA-PFIZER INC-202400323639

PATIENT

DRUGS (4)
  1. INFLECTRA [Suspect]
     Active Substance: INFLIXIMAB-DYYB
     Indication: Colitis ulcerative
     Route: 042
     Dates: start: 20241120
  2. INFLECTRA [Suspect]
     Active Substance: INFLIXIMAB-DYYB
     Route: 042
     Dates: start: 20241203
  3. INFLECTRA [Suspect]
     Active Substance: INFLIXIMAB-DYYB
     Route: 042
     Dates: start: 20250108
  4. PREDNISONE [Concomitant]
     Active Substance: PREDNISONE

REACTIONS (10)
  - Ischaemic stroke [Fatal]
  - Condition aggravated [Unknown]
  - COVID-19 [Recovering/Resolving]
  - Back pain [Unknown]
  - Neutropenia [Unknown]
  - C-reactive protein increased [Unknown]
  - Full blood count abnormal [Unknown]
  - Drug level below therapeutic [Unknown]
  - Sacral pain [Unknown]
  - Off label use [Unknown]

NARRATIVE: CASE EVENT DATE: 20240101
